FAERS Safety Report 9756470 (Version 1)
Quarter: 2013Q4

REPORT INFORMATION
  Report Type: Spontaneous
  Country: US (occurrence: US)
  Receive Date: 20131213
  Receipt Date: 20131213
  Transmission Date: 20140711
  Serious: No
  Sender: FDA-Public Use
  Company Number: US-GLAXOSMITHKLINE-A1042425A

PATIENT
  Age: 54 Year
  Sex: Female

DRUGS (2)
  1. NICODERM CQ CLEAR 21MG [Suspect]
     Indication: EX-TOBACCO USER
     Dates: start: 20130910, end: 20130919
  2. NICODERM CQ CLEAR 14MG [Suspect]
     Indication: PRODUCT USED FOR UNKNOWN INDICATION
     Route: 065
     Dates: start: 201310

REACTIONS (6)
  - Application site swelling [Not Recovered/Not Resolved]
  - Application site bruise [Not Recovered/Not Resolved]
  - Drug administration error [Unknown]
  - Application site reaction [Not Recovered/Not Resolved]
  - Application site erythema [Unknown]
  - Hypersensitivity [Unknown]
